FAERS Safety Report 6732070-X (Version None)
Quarter: 2010Q2

REPORT INFORMATION
  Report Type: 
  Country: None (occurrence: None)
  Receive Date: 20100519
  Receipt Date: 20100509
  Transmission Date: 20101027
  Serious: Yes (Death, Hospitalization)
  Sender: FDA-Public Use
  Company Number: CN-BRACCO-000159

PATIENT
  Sex: Female

DRUGS (2)
  1. IOPAMIRO [Suspect]
     Indication: ANGIOGRAM
     Route: 042
     Dates: start: 20100421, end: 20100421
  2. IOPAMIRO [Suspect]
     Indication: CHEST PAIN
     Route: 042
     Dates: start: 20100421, end: 20100421

REACTIONS (7)
  - CHEST DISCOMFORT [None]
  - HEART RATE DECREASED [None]
  - HEART RATE IRREGULAR [None]
  - HYPOTENSION [None]
  - LOSS OF CONSCIOUSNESS [None]
  - NAUSEA [None]
  - VOMITING [None]
